FAERS Safety Report 13666619 (Version 1)
Quarter: 2017Q2

REPORT INFORMATION
  Report Type: Spontaneous
  Country: US (occurrence: US)
  Receive Date: 20170619
  Receipt Date: 20170619
  Transmission Date: 20170830
  Serious: No
  Sender: FDA-Public Use
  Company Number: US-ROCHE-794830

PATIENT
  Age: 75 Year
  Sex: Female

DRUGS (4)
  1. XELODA [Suspect]
     Active Substance: CAPECITABINE
     Indication: BREAST CANCER METASTATIC
     Dosage: FORM: TABLETS
     Route: 048
     Dates: start: 200808, end: 201003
  2. HERCEPTIN [Concomitant]
     Active Substance: TRASTUZUMAB
     Indication: BREAST CANCER METASTATIC
     Route: 065
  3. TYKERB [Concomitant]
     Active Substance: LAPATINIB DITOSYLATE
     Route: 065
  4. FASLODEX [Concomitant]
     Active Substance: FULVESTRANT
     Route: 065

REACTIONS (6)
  - Therapy non-responder [Unknown]
  - Abdominal discomfort [Unknown]
  - Influenza like illness [Unknown]
  - Diarrhoea [Unknown]
  - Oropharyngeal pain [Unknown]
  - Neuropathy peripheral [Unknown]
